FAERS Safety Report 15399187 (Version 3)
Quarter: 2018Q4

REPORT INFORMATION
  Report Type: Spontaneous
  Country: US (occurrence: US)
  Receive Date: 20180918
  Receipt Date: 20181204
  Transmission Date: 20190204
  Serious: Yes (Hospitalization, Other)
  Sender: FDA-Public Use
  Company Number: US-BAUSCH-BL-2018-025405

PATIENT
  Age: 46 Year
  Sex: Female

DRUGS (2)
  1. GLUMETZA [Suspect]
     Active Substance: METFORMIN HYDROCHLORIDE
     Indication: DIABETES MELLITUS
     Dosage: BY MOUTH FOR 2 YEARS
     Route: 048
     Dates: end: 201809
  2. GLUMETZA [Suspect]
     Active Substance: METFORMIN HYDROCHLORIDE
     Indication: BLOOD INSULIN ABNORMAL
     Route: 048
     Dates: start: 201809

REACTIONS (4)
  - Product colour issue [Not Recovered/Not Resolved]
  - Ketoacidosis [Unknown]
  - Lactic acidosis [Recovered/Resolved]
  - Chest pain [Recovered/Resolved]

NARRATIVE: CASE EVENT DATE: 201809
